FAERS Safety Report 5277303-4 (Version None)
Quarter: 2007Q1

REPORT INFORMATION
  Report Type: 
  Country: None (occurrence: None)
  Receive Date: 20070327
  Receipt Date: 20070315
  Transmission Date: 20070707
  Serious: Yes (Hospitalization)
  Sender: FDA-Public Use
  Company Number: US-JNJFOC-20070304014

PATIENT
  Sex: Female

DRUGS (10)
  1. INFLIXIMAB [Suspect]
     Indication: RHEUMATOID ARTHRITIS
     Route: 042
  2. ALEVE [Concomitant]
  3. CLONIDINE [Concomitant]
  4. METHOTREXATE [Concomitant]
  5. MULTI-VITAMIN [Concomitant]
  6. PLAQUENIL [Concomitant]
  7. TYLENOL [Concomitant]
  8. ACTONEL [Concomitant]
  9. VITAMIN E [Concomitant]
  10. CALCIUM + D [Concomitant]

REACTIONS (3)
  - GLOBAL AMNESIA [None]
  - MENTAL STATUS CHANGES [None]
  - TEMPORAL LOBE EPILEPSY [None]
